FAERS Safety Report 12278534 (Version 1)
Quarter: 2016Q2

REPORT INFORMATION
  Report Type: Report from Study
  Country: US (occurrence: US)
  Receive Date: 20160418
  Receipt Date: 20160418
  Transmission Date: 20160815
  Serious: Yes (Hospitalization)
  Sender: FDA-Public Use
  Company Number: US-PURDUE-USA-2016-0130280

PATIENT
  Sex: Male

DRUGS (1)
  1. OXYCONTIN [Suspect]
     Active Substance: OXYCODONE HYDROCHLORIDE
     Indication: POLYNEUROPATHY IDIOPATHIC PROGRESSIVE
     Dosage: 80 MG, QID
     Route: 048
     Dates: start: 2012

REACTIONS (1)
  - Hiatus hernia [Unknown]
